FAERS Safety Report 25721859 (Version 1)
Quarter: 2025Q3

REPORT INFORMATION
  Report Type: Spontaneous
  Country: US (occurrence: None)
  Receive Date: 20250823
  Receipt Date: 20250823
  Transmission Date: 20251021
  Serious: Yes (Other)
  Sender: FDA-CTU
  Company Number: None

PATIENT
  Age: 28 Year
  Sex: Male
  Weight: 80.1 kg

DRUGS (7)
  1. VILAZODONE [Suspect]
     Active Substance: VILAZODONE
  2. NIACIN [Suspect]
     Active Substance: NIACIN
  3. CAFFEINE\DIETARY SUPPLEMENT [Suspect]
     Active Substance: CAFFEINE\DIETARY SUPPLEMENT
  4. BUSPIRONE [Concomitant]
     Active Substance: BUSPIRONE HYDROCHLORIDE
  5. ADDERALL [Concomitant]
     Active Substance: AMPHETAMINE ASPARTATE\AMPHETAMINE SULFATE\DEXTROAMPHETAMINE SACCHARATE\DEXTROAMPHETAMINE SULFATE
  6. CIALIS [Concomitant]
     Active Substance: TADALAFIL
  7. CAFFEINE [Concomitant]
     Active Substance: CAFFEINE

REACTIONS (5)
  - Drug interaction [None]
  - Diarrhoea [None]
  - Gastrointestinal hypermotility [None]
  - Frequent bowel movements [None]
  - Antidepressant drug level increased [None]

NARRATIVE: CASE EVENT DATE: 20250818
